FAERS Safety Report 19532904 (Version 1)
Quarter: 2021Q3

REPORT INFORMATION
  Report Type: Report from Study
  Country: US (occurrence: US)
  Receive Date: 20210713
  Receipt Date: 20210713
  Transmission Date: 20211014
  Serious: Yes (Hospitalization)
  Sender: FDA-Public Use
  Company Number: US-ASTRAZENECA-2017SF25725

PATIENT
  Age: 4038 Day
  Sex: Female
  Weight: 34.4 kg

DRUGS (2)
  1. AZD6244 [Suspect]
     Active Substance: SELUMETINIB
     Indication: NEUROFIBROMATOSIS
     Route: 048
     Dates: start: 20171212
  2. AZD6244 [Suspect]
     Active Substance: SELUMETINIB
     Indication: NEUROFIBROMATOSIS
     Route: 048
     Dates: start: 20170911, end: 20171207

REACTIONS (22)
  - Muscular weakness [Not Recovered/Not Resolved]
  - Sinusitis [Recovered/Resolved]
  - Upper respiratory tract infection [Recovered/Resolved]
  - Cellulitis [Recovered/Resolved]
  - Dermatitis acneiform [Recovered/Resolved]
  - Nasal congestion [Recovered/Resolved]
  - Rhinitis allergic [Recovered/Resolved]
  - Fatigue [Not Recovered/Not Resolved]
  - Ataxia [Not Recovered/Not Resolved]
  - Hypotonia [Not Recovered/Not Resolved]
  - Dysarthria [Not Recovered/Not Resolved]
  - Gait disturbance [Not Recovered/Not Resolved]
  - Thrombosed varicose vein [Recovered/Resolved]
  - Tachycardia [Not Recovered/Not Resolved]
  - Cognitive disorder [Not Recovered/Not Resolved]
  - Constipation [Recovered/Resolved]
  - Diarrhoea [Recovered/Resolved]
  - Cough [Recovered/Resolved]
  - Hypoglycaemia [Recovered/Resolved]
  - Eyelid ptosis [Not Recovered/Not Resolved]
  - Oropharyngeal pain [Recovered/Resolved]
  - Strabismus [Not Recovered/Not Resolved]

NARRATIVE: CASE EVENT DATE: 20170922
